FAERS Safety Report 24836953 (Version 1)
Quarter: 2025Q1

REPORT INFORMATION
  Report Type: Spontaneous
  Country: US (occurrence: None)
  Receive Date: 20250110
  Receipt Date: 20250110
  Transmission Date: 20250409
  Serious: Yes (Other)
  Sender: FDA-CTU
  Company Number: None

PATIENT
  Age: 27 Year
  Sex: Female

DRUGS (1)
  1. SUBOXONE [Suspect]
     Active Substance: BUPRENORPHINE HYDROCHLORIDE\NALOXONE HYDROCHLORIDE
     Indication: Drug use disorder
     Dosage: 8 MG DAILY SUBLINGUAL ?
     Route: 060

REACTIONS (5)
  - Headache [None]
  - Nausea [None]
  - Influenza like illness [None]
  - Oedema peripheral [None]
  - Drug hypersensitivity [None]

NARRATIVE: CASE EVENT DATE: 20250109
